FAERS Safety Report 5080729-5 (Version None)
Quarter: 2006Q3

REPORT INFORMATION
  Report Type: 
  Country: None (occurrence: None)
  Receive Date: 20060809
  Receipt Date: 20060724
  Transmission Date: 20061208
  Serious: Yes (Life-Threatening, Hospitalization, Other)
  Sender: FDA-Public Use
  Company Number: 2006AL001934

PATIENT
  Age: 71 Year
  Sex: Male

DRUGS (2)
  1. NAPROXEN DR [Suspect]
     Dosage: 500 MG;BID;PO
     Route: 048
     Dates: start: 20030101, end: 20060220
  2. DIHYDROCODEINE [Concomitant]

REACTIONS (1)
  - GASTROINTESTINAL HAEMORRHAGE [None]
